FAERS Safety Report 5881269-3 (Version None)
Quarter: 2008Q3

REPORT INFORMATION
  Report Type: 
  Country: None (occurrence: None)
  Receive Date: 20080912
  Receipt Date: 20080729
  Transmission Date: 20090109
  Serious: No
  Sender: FDA-Public Use
  Company Number: US-ABBOTT-08P-163-0459575-00

PATIENT
  Sex: Male
  Weight: 77.18 kg

DRUGS (3)
  1. HUMIRA [Suspect]
     Indication: CROHN'S DISEASE
     Route: 058
     Dates: start: 20070901, end: 20080301
  2. INFLIXIMAB [Concomitant]
     Indication: CROHN'S DISEASE
     Dosage: UNKNOWN DOSE EVERY EIGHT WEEKS
     Route: 042
     Dates: start: 20080401
  3. IMODIUM [Concomitant]
     Indication: DIARRHOEA
     Dosage: ONE TO TWO TABLETS BID
     Route: 048

REACTIONS (1)
  - DRUG INEFFECTIVE [None]
